FAERS Safety Report 7910721-1 (Version None)
Quarter: 2011Q4

REPORT INFORMATION
  Report Type: 
  Country: None (occurrence: None)
  Receive Date: 20111111
  Receipt Date: 20111026
  Transmission Date: 20120403
  Serious: Yes (Hospitalization, Other)
  Sender: FDA-Public Use
  Company Number: PHHY2011JP51674

PATIENT
  Sex: Male
  Weight: 41 kg

DRUGS (4)
  1. TASIGNA [Suspect]
     Dosage: 400 MG, DAILY
     Route: 048
     Dates: start: 20101030, end: 20110605
  2. ZOSYN [Suspect]
     Indication: PNEUMONIA
     Dosage: 13.5 G, QD
     Route: 042
     Dates: start: 20110516, end: 20110606
  3. TASIGNA [Suspect]
     Indication: CHRONIC MYELOID LEUKAEMIA
     Dosage: 200 MG, DAILY
     Route: 048
     Dates: start: 20101002, end: 20101029
  4. TASIGNA [Suspect]
     Dosage: 200 MG, DAILY
     Dates: start: 20110615

REACTIONS (2)
  - RENAL DISORDER [None]
  - PNEUMONIA ASPIRATION [None]
